FAERS Safety Report 18377383 (Version 2)
Quarter: 2020Q4

REPORT INFORMATION
  Report Type: Spontaneous
  Country: IT (occurrence: IT)
  Receive Date: 20201013
  Receipt Date: 20201019
  Transmission Date: 20210114
  Serious: Yes (Other)
  Sender: FDA-Public Use
  Company Number: IT-GLAXOSMITHKLINE-IT2020200539

PATIENT
  Age: 50 Year
  Sex: Male

DRUGS (1)
  1. VOLTAREN (DICLOFENAC DIETHYLAMMONIUM SALT) [Suspect]
     Active Substance: DICLOFENAC DIETHYLAMINE
     Indication: PERIARTHRITIS
     Dosage: 150 MG, SINGLE (TOTAL)
     Route: 048
     Dates: start: 20200927, end: 20200927

REACTIONS (1)
  - Abdominal pain upper [Recovering/Resolving]

NARRATIVE: CASE EVENT DATE: 20200927
